FAERS Safety Report 13981060 (Version 1)
Quarter: 2017Q3

REPORT INFORMATION
  Report Type: Spontaneous
  Country: US (occurrence: US)
  Receive Date: 20170918
  Receipt Date: 20170918
  Transmission Date: 20171128
  Serious: No
  Sender: FDA-Public Use
  Company Number: US-TEVA-721094USA

PATIENT

DRUGS (1)
  1. BUPROPION HYDROCHLORIDE XL [Suspect]
     Active Substance: BUPROPION HYDROCHLORIDE
     Dates: start: 20161010

REACTIONS (5)
  - Agitation [Unknown]
  - Anger [Recovered/Resolved]
  - Mania [Recovered/Resolved]
  - Energy increased [Unknown]
  - Therapeutic response changed [Unknown]
